FAERS Safety Report 23895465 (Version 1)
Quarter: 2024Q2

REPORT INFORMATION
  Report Type: Spontaneous
  Country: US (occurrence: US)
  Receive Date: 20240524
  Receipt Date: 20240524
  Transmission Date: 20240716
  Serious: No
  Sender: FDA-Public Use
  Company Number: US-BAYER-2024A069845

PATIENT

DRUGS (3)
  1. ALEVE [Suspect]
     Active Substance: NAPROXEN SODIUM
     Indication: Pain
     Dosage: UNK
     Route: 065
  2. ALEVE [Suspect]
     Active Substance: NAPROXEN SODIUM
     Indication: Osteoarthritis
  3. ALEVE [Suspect]
     Active Substance: NAPROXEN SODIUM
     Indication: Carpal tunnel syndrome

REACTIONS (2)
  - Therapeutic response delayed [None]
  - Drug ineffective for unapproved indication [Unknown]
